FAERS Safety Report 9863316 (Version 2)
Quarter: 2014Q1

REPORT INFORMATION
  Report Type: Spontaneous
  Country: GB (occurrence: GB)
  Receive Date: 20140203
  Receipt Date: 20140228
  Transmission Date: 20141002
  Serious: Yes (Other)
  Sender: FDA-Public Use
  Company Number: GB-ACTAVIS-2014-01066

PATIENT
  Age: 26 Year
  Sex: Female

DRUGS (2)
  1. DOXYCYCLINE HYCLATE (UNKNOWN) [Suspect]
     Indication: LOWER RESPIRATORY TRACT INFECTION
     Dosage: UNK
     Route: 065
  2. ZAPONEX [Suspect]
     Indication: PRODUCT USED FOR UNKNOWN INDICATION
     Dosage: UNK
     Route: 048
     Dates: start: 20131115

REACTIONS (2)
  - Lower respiratory tract infection [Unknown]
  - White blood cell count increased [Unknown]
